FAERS Safety Report 21704235 (Version 2)
Quarter: 2022Q4

REPORT INFORMATION
  Report Type: Report from Study
  Country: US (occurrence: US)
  Receive Date: 20221209
  Receipt Date: 20221212
  Transmission Date: 20230113
  Serious: Yes (Hospitalization)
  Sender: FDA-Public Use
  Company Number: US-EXELIXIS-XL18422058615

PATIENT
  Age: 66 Year
  Sex: Female
  Weight: 81.6 kg

DRUGS (6)
  1. IPILIMUMAB [Suspect]
     Active Substance: IPILIMUMAB
     Indication: Renal cancer
     Dosage: 1 MG/KG ON DAY 1 (CYCLES 1-4) (CYCLE=21 DAYS)
     Route: 042
     Dates: start: 20190711
  2. NIVOLUMAB [Suspect]
     Active Substance: NIVOLUMAB
     Indication: Renal cancer
     Dosage: 3 MG/KG ON DAY 1 (CYCLES 1-4) (CYCLE= 21 DAYS)
     Route: 042
     Dates: start: 20190711
  3. NIVOLUMAB [Suspect]
     Active Substance: NIVOLUMAB
     Dosage: 480 MG ON DAY 1 (CYCLES 5+) (CYCLE = 28 DAYS)
     Route: 042
  4. CABOZANTINIB [Suspect]
     Active Substance: CABOZANTINIB
     Indication: Renal cancer
     Route: 048
     Dates: start: 20190711
  5. CABOZANTINIB [Suspect]
     Active Substance: CABOZANTINIB
     Dosage: TOTAL DOSE ADMINISTERED THIS COURSE IS 320 MG.
     Route: 048
     Dates: start: 20221016
  6. CABOZANTINIB [Suspect]
     Active Substance: CABOZANTINIB
     Dosage: ON 23 OCT 2020, THE PATIENT RECEIVED THE MOST RECENT DOSE OF?CABOZANTINIB PRIOR TO THE EVENT ONSET.T
     Route: 048
     Dates: start: 20201023

REACTIONS (1)
  - Ureterolithiasis [Recovered/Resolved]

NARRATIVE: CASE EVENT DATE: 20201023
